FAERS Safety Report 19486410 (Version 1)
Quarter: 2021Q3

REPORT INFORMATION
  Report Type: Not Available
  Country: None (occurrence: None)
  Receive Date: 20210702
  Receipt Date: 20210702
  Transmission Date: 20211014
  Serious: No
  Sender: FDA-Public Use
  Company Number: US-AKORN-168621

PATIENT
  Sex: Female

DRUGS (1)
  1. XOPENEX [Suspect]
     Active Substance: LEVALBUTEROL HYDROCHLORIDE

REACTIONS (5)
  - Pruritus [None]
  - Heart rate increased [None]
  - Headache [None]
  - Rash [None]
  - Urticaria [None]
